FAERS Safety Report 22803680 (Version 3)
Quarter: 2023Q4

REPORT INFORMATION
  Report Type: Spontaneous
  Country: US (occurrence: US)
  Receive Date: 20230809
  Receipt Date: 20231016
  Transmission Date: 20240110
  Serious: No
  Sender: FDA-Public Use
  Company Number: US-LEO Pharma-361268

PATIENT
  Age: 65 Year
  Sex: Female

DRUGS (1)
  1. ADBRY [Suspect]
     Active Substance: TRALOKINUMAB-LDRM
     Indication: Dermatitis atopic
     Dosage: TREATMENT IS ONGOING
     Route: 058
     Dates: start: 20221130

REACTIONS (8)
  - Rash [Unknown]
  - Periorbital swelling [Recovering/Resolving]
  - Eyelids pruritus [Unknown]
  - Conjunctivitis [Recovering/Resolving]
  - Eyelid skin dryness [Unknown]
  - Eyelid margin crusting [Recovering/Resolving]
  - Eye pruritus [Recovering/Resolving]
  - Ocular hyperaemia [Recovering/Resolving]
